FAERS Safety Report 17170836 (Version 1)
Quarter: 2019Q4

REPORT INFORMATION
  Report Type: Report from Study
  Country: IE (occurrence: IE)
  Receive Date: 20191218
  Receipt Date: 20191218
  Transmission Date: 20200122
  Serious: Yes (Hospitalization)
  Sender: FDA-Public Use
  Company Number: IE-ASTRAZENECA-2019SF83364

PATIENT
  Age: 0 Year
  Sex: Female

DRUGS (4)
  1. SYNAGIS [Suspect]
     Active Substance: PALIVIZUMAB
     Indication: SPINA BIFIDA
     Dosage: 15.0MG/KG UNKNOWN
     Route: 030
     Dates: start: 20191113
  2. SYNAGIS [Suspect]
     Active Substance: PALIVIZUMAB
     Indication: SPINA BIFIDA
     Dosage: 15.0MG/KG UNKNOWN
     Route: 030
     Dates: start: 20181218, end: 20191016
  3. SYNAGIS [Suspect]
     Active Substance: PALIVIZUMAB
     Indication: LUNG DISORDER
     Dosage: 15.0MG/KG UNKNOWN
     Route: 030
     Dates: start: 20191113
  4. SYNAGIS [Suspect]
     Active Substance: PALIVIZUMAB
     Indication: LUNG DISORDER
     Dosage: 15.0MG/KG UNKNOWN
     Route: 030
     Dates: start: 20181218, end: 20191016

REACTIONS (2)
  - Cough [Recovered/Resolved]
  - Product use in unapproved indication [Unknown]

NARRATIVE: CASE EVENT DATE: 2018
